FAERS Safety Report 21466347 (Version 1)
Quarter: 2022Q4

REPORT INFORMATION
  Report Type: Other
  Country: NL (occurrence: NL)
  Receive Date: 20221017
  Receipt Date: 20221017
  Transmission Date: 20230113
  Serious: Yes (Hospitalization, Other)
  Sender: FDA-Public Use
  Company Number: NL-LANTHEUS-LMI-2022-01201

PATIENT
  Sex: Female

DRUGS (7)
  1. PERFLUTREN [Suspect]
     Active Substance: PERFLUTREN
     Indication: Thrombolysis
     Dosage: 1.5 MILLILITRE (UNKNOWN AMOUNT OF LUMINITY PREPARED IN 50 ML NORMAL SALINE)
     Route: 042
     Dates: start: 20220915, end: 20220915
  2. LIPITOR [Concomitant]
     Active Substance: ATORVASTATIN CALCIUM
     Indication: Product used for unknown indication
     Dosage: 80 MILLIGRAM 1DD
     Route: 048
  3. DAPAGLIFLOZIN [Concomitant]
     Active Substance: DAPAGLIFLOZIN
     Indication: Product used for unknown indication
     Dosage: 10 MILLIGRAM 1DD
     Route: 048
  4. EDOXABAN [Concomitant]
     Active Substance: EDOXABAN
     Indication: Product used for unknown indication
     Dosage: 30 MILLIGRAM, QD
     Route: 048
  5. EPLERENONE [Concomitant]
     Active Substance: EPLERENONE
     Indication: Product used for unknown indication
     Dosage: 12.5 MILLIGRAM 1DD
     Route: 048
  6. PANTOPRAZOLE [Concomitant]
     Active Substance: PANTOPRAZOLE
     Indication: Product used for unknown indication
     Dosage: 40 MILLIGRAM, QD
     Route: 048
  7. CLOPIDOGREL [Concomitant]
     Active Substance: CLOPIDOGREL BISULFATE
     Indication: Product used for unknown indication
     Dosage: 75 MILLIGRAM 1DD

REACTIONS (7)
  - Myocardial ischaemia [Recovered/Resolved]
  - COVID-19 [Recovered/Resolved]
  - Electrocardiogram ST segment elevation [Recovered/Resolved]
  - Atrial fibrillation [Recovered/Resolved]
  - Arrhythmia [Recovered/Resolved]
  - Pain in jaw [Recovered/Resolved]
  - Chest pain [Recovered/Resolved]

NARRATIVE: CASE EVENT DATE: 20220915
